FAERS Safety Report 9800752 (Version 10)
Quarter: 2014Q2

REPORT INFORMATION
  Report Type: Spontaneous
  Country: US (occurrence: US)
  Receive Date: 20140107
  Receipt Date: 20140603
  Transmission Date: 20141212
  Serious: No
  Sender: FDA-Public Use
  Company Number: US-PFIZER INC-2014000499

PATIENT
  Age: 71 Year
  Sex: Male

DRUGS (4)
  1. SUTENT [Suspect]
     Indication: RENAL CELL CARCINOMA
     Dosage: 50 MG, CYCLIC (4 WEEKS ON AND 2 WEEKS OFF)
     Route: 048
     Dates: start: 20131202
  2. SUTENT [Suspect]
     Dosage: 50 MG, DAILY (14 DAYS ON, 7 DAYS OFF)
     Route: 048
     Dates: end: 20140210
  3. SUTENT [Suspect]
     Dosage: 50 MG, CYCLIC (2 WEEKS ON AND 1 WEEK OFF)
     Dates: start: 20140221
  4. SYNTHROID [Concomitant]
     Indication: HYPOTHYROIDISM
     Dosage: 25 UG, DAILY
     Dates: start: 20140102

REACTIONS (16)
  - Fatigue [Not Recovered/Not Resolved]
  - Dizziness [Recovered/Resolved]
  - Hypotension [Recovered/Resolved]
  - Oral pain [Not Recovered/Not Resolved]
  - Decreased appetite [Recovered/Resolved]
  - Dysgeusia [Recovered/Resolved]
  - Dry mouth [Not Recovered/Not Resolved]
  - Stomatitis [Recovered/Resolved]
  - Glossodynia [Not Recovered/Not Resolved]
  - Asthenia [Recovered/Resolved]
  - Muscle fatigue [Recovered/Resolved]
  - Mucosal inflammation [Recovered/Resolved]
  - Urinary tract infection [Recovered/Resolved]
  - Hair colour changes [Unknown]
  - Skin discolouration [Unknown]
  - Hair texture abnormal [Unknown]
